FAERS Safety Report 18260469 (Version 1)
Quarter: 2020Q3

REPORT INFORMATION
  Report Type: Spontaneous
  Country: FR (occurrence: FR)
  Receive Date: 20200914
  Receipt Date: 20200914
  Transmission Date: 20201103
  Serious: Yes (Hospitalization)
  Sender: FDA-Public Use
  Company Number: FR-TEVA-2020-FR-1825639

PATIENT
  Age: 90 Year
  Sex: Female
  Weight: 47.3 kg

DRUGS (8)
  1. PANTOPRAZOLE [Suspect]
     Active Substance: PANTOPRAZOLE
     Indication: PROPHYLAXIS
     Dosage: 20 MG
     Route: 048
     Dates: end: 20200731
  2. ATORVASTATINE [Concomitant]
     Active Substance: ATORVASTATIN
     Indication: ISCHAEMIC STROKE
     Dosage: 20 MG
     Route: 048
  3. AMLODIPINE [Concomitant]
     Active Substance: AMLODIPINE BESYLATE
     Indication: HYPERTENSION
     Dosage: 10 MG
     Route: 048
  4. PREVISCAN 20 MG, COMPRIME SECABLE [Concomitant]
     Active Substance: FLUINDIONE
     Indication: ISCHAEMIC STROKE
     Dosage: 15 MG
     Route: 048
  5. CANDESARTAN CILEXETIL. [Concomitant]
     Active Substance: CANDESARTAN CILEXETIL
     Indication: HYPERTENSION
     Dosage: 16 MG
     Route: 048
  6. HYDROCHLOROTHIAZIDE. [Suspect]
     Active Substance: HYDROCHLOROTHIAZIDE
     Indication: HYPERTENSION
     Dosage: 6.25 MG
     Route: 048
     Dates: end: 20200731
  7. CODOLIPRANE [Concomitant]
     Active Substance: ACETAMINOPHEN\CODEINE PHOSPHATE
     Dosage: UNKNOWN
     Route: 048
     Dates: end: 20200731
  8. BISOPROLOL (FUMARATE ACIDE DE) [Concomitant]
     Active Substance: BISOPROLOL FUMARATE
     Indication: HYPERTENSION
     Dosage: 10 MG
     Route: 048

REACTIONS (2)
  - Disorientation [Recovered/Resolved]
  - Hyponatraemia [Recovered/Resolved]

NARRATIVE: CASE EVENT DATE: 20200721
